FAERS Safety Report 20193350 (Version 2)
Quarter: 2021Q4

REPORT INFORMATION
  Report Type: Spontaneous
  Country: US (occurrence: US)
  Receive Date: 20211216
  Receipt Date: 20211230
  Transmission Date: 20220304
  Serious: Yes (Life-Threatening, Hospitalization, Other)
  Sender: FDA-Public Use
  Company Number: US-Accord-247285

PATIENT
  Age: 55 Year
  Sex: Female

DRUGS (1)
  1. TOPIRAMATE [Suspect]
     Active Substance: TOPIRAMATE
     Indication: Myoclonus
     Dosage: OTHER MEDICALLY IMPORTANT CONDITION

REACTIONS (7)
  - Renal tubular acidosis [Recovered/Resolved]
  - Hyposthenuria [Recovering/Resolving]
  - Osmotic demyelination syndrome [Recovering/Resolving]
  - Renal salt-wasting syndrome [Recovered/Resolved]
  - Hemiparesis [Recovering/Resolving]
  - Metabolic acidosis [Recovered/Resolved]
  - Hypotension [Unknown]
